FAERS Safety Report 23281615 (Version 1)
Quarter: 2023Q4

REPORT INFORMATION
  Report Type: Spontaneous
  Country: US (occurrence: US)
  Receive Date: 20231211
  Receipt Date: 20231211
  Transmission Date: 20240110
  Serious: Yes (Other)
  Sender: FDA-Public Use
  Company Number: US-AMGEN-USASP2023218859

PATIENT
  Sex: Female

DRUGS (1)
  1. TRASTUZUMAB [Suspect]
     Active Substance: TRASTUZUMAB
     Indication: HER2 positive endometrial cancer
     Dosage: UNK
     Route: 065

REACTIONS (4)
  - Endometrial cancer recurrent [Unknown]
  - Drug effective for unapproved indication [Unknown]
  - Gene mutation [Unknown]
  - Off label use [Unknown]
